FAERS Safety Report 13671980 (Version 1)
Quarter: 2017Q2

REPORT INFORMATION
  Report Type: Report from Study
  Country: US (occurrence: US)
  Receive Date: 20170620
  Receipt Date: 20170620
  Transmission Date: 20170830
  Serious: Yes (Other)
  Sender: FDA-Public Use
  Company Number: US-GILEAD-2017-0274329

PATIENT
  Age: 64 Year
  Sex: Male

DRUGS (1)
  1. LEDIPASVIR/SOFOSBUVIR [Suspect]
     Active Substance: LEDIPASVIR\SOFOSBUVIR
     Indication: CHRONIC HEPATITIS C
     Dosage: 1 DF, QD
     Route: 048
     Dates: start: 20150831, end: 20151130

REACTIONS (7)
  - Fatigue [Recovered/Resolved]
  - Swelling face [Unknown]
  - Hypersensitivity [Unknown]
  - Colitis ulcerative [Recovered/Resolved]
  - Spleen disorder [Unknown]
  - Food allergy [Recovered/Resolved]
  - Liver disorder [Unknown]

NARRATIVE: CASE EVENT DATE: 2015
